FAERS Safety Report 17847921 (Version 1)
Quarter: 2020Q2

REPORT INFORMATION
  Report Type: Spontaneous
  Country: US (occurrence: US)
  Receive Date: 20200601
  Receipt Date: 20200601
  Transmission Date: 20200714
  Serious: Yes (Other)
  Sender: FDA-Public Use
  Company Number: US-PFIZER INC-2020209805

PATIENT
  Age: 69 Year
  Sex: Male

DRUGS (2)
  1. CODEINE SULFATE. [Suspect]
     Active Substance: CODEINE SULFATE
     Dosage: UNK
  2. XANAX [Suspect]
     Active Substance: ALPRAZOLAM
     Dosage: UNK

REACTIONS (16)
  - Pain [Unknown]
  - Waist circumference decreased [Unknown]
  - Pain in extremity [Unknown]
  - Feeding disorder [Unknown]
  - Suicidal ideation [Unknown]
  - Blood pressure decreased [Unknown]
  - Neoplasm malignant [Recovered/Resolved]
  - Gait disturbance [Unknown]
  - Spinal fracture [Unknown]
  - Dysentery [Unknown]
  - Weight decreased [Unknown]
  - Loss of personal independence in daily activities [Unknown]
  - Insomnia [Unknown]
  - Crying [Unknown]
  - Drug withdrawal syndrome [Unknown]
  - Hypertension [Unknown]
